FAERS Safety Report 16152411 (Version 2)
Quarter: 2019Q3

REPORT INFORMATION
  Report Type: Spontaneous
  Country: US (occurrence: US)
  Receive Date: 20190403
  Receipt Date: 20190827
  Transmission Date: 20191004
  Serious: Yes (Other)
  Sender: FDA-Public Use
  Company Number: US-SA-2019SA088562

PATIENT
  Age: 53 Year
  Sex: Female
  Weight: 79.37 kg

DRUGS (3)
  1. TAXOTERE [Suspect]
     Active Substance: DOCETAXEL
     Indication: BREAST CANCER FEMALE
     Dosage: 1 MG, Q3W
     Route: 042
     Dates: start: 20140825, end: 20140825
  2. ADRIAMYCIN [Concomitant]
     Active Substance: DOXORUBICIN HYDROCHLORIDE
     Indication: BREAST CANCER FEMALE
  3. TAXOTERE [Suspect]
     Active Substance: DOCETAXEL
     Dosage: 1 MG, Q3W
     Route: 042
     Dates: start: 20141218, end: 20141218

REACTIONS (6)
  - Alopecia [Recovering/Resolving]
  - Emotional distress [Unknown]
  - Anxiety [Unknown]
  - Impaired quality of life [Unknown]
  - Pain [Unknown]
  - Psychological trauma [Unknown]

NARRATIVE: CASE EVENT DATE: 20140925
